FAERS Safety Report 17122826 (Version 1)
Quarter: 2019Q4

REPORT INFORMATION
  Report Type: Spontaneous
  Country: US (occurrence: US)
  Receive Date: 20191206
  Receipt Date: 20191206
  Transmission Date: 20200122
  Serious: No
  Sender: FDA-Public Use
  Company Number: US-ROCHE-2328537

PATIENT
  Age: 41 Year
  Sex: Female
  Weight: 77.18 kg

DRUGS (2)
  1. OCREVUS [Suspect]
     Active Substance: OCRELIZUMAB
     Dosage: 2ND HALF DOSE ;ONGOING: UNKNOWN
     Route: 042
     Dates: start: 20190322
  2. OCREVUS [Suspect]
     Active Substance: OCRELIZUMAB
     Indication: RELAPSING-REMITTING MULTIPLE SCLEROSIS
     Dosage: 1ST HALF DOSE ;ONGOING: NO
     Route: 042
     Dates: start: 20190308

REACTIONS (2)
  - Nausea [Not Recovered/Not Resolved]
  - Endocrine disorder [Unknown]

NARRATIVE: CASE EVENT DATE: 20190315
